FAERS Safety Report 5747858-1 (Version None)
Quarter: 2008Q2

REPORT INFORMATION
  Report Type: 
  Country: None (occurrence: None)
  Receive Date: 20080523
  Receipt Date: 20080520
  Transmission Date: 20081010
  Serious: Yes (Hospitalization)
  Sender: FDA-Public Use
  Company Number: US-MERCK-0805USA04503

PATIENT
  Age: 57 Year
  Sex: Female

DRUGS (5)
  1. FOSAMAX [Suspect]
     Indication: BONE DISORDER
     Route: 048
     Dates: start: 20070101
  2. FOSAMAX [Suspect]
     Indication: BACK DISORDER
     Route: 048
     Dates: start: 20070101
  3. NEXIUM [Concomitant]
     Route: 065
  4. [THERAPY UNSPECIFIED] [Concomitant]
     Route: 065
  5. PROMETHAZINE [Concomitant]
     Route: 065

REACTIONS (5)
  - ASTHENIA [None]
  - DEHYDRATION [None]
  - OESOPHAGEAL DISORDER [None]
  - OESOPHAGEAL SPASM [None]
  - VOMITING [None]
